FAERS Safety Report 7311430-2 (Version None)
Quarter: 2011Q1

REPORT INFORMATION
  Report Type: 
  Country: None (occurrence: None)
  Receive Date: 20110216
  Receipt Date: 20110216
  Transmission Date: 20110831
  Serious: Yes (Other)
  Sender: FDA-Public Use
  Company Number: None

PATIENT
  Age: 26 Year
  Sex: Female
  Weight: 53.5244 kg

DRUGS (1)
  1. ZICAM COLD REMEDY LIQUID-LOZ PLUS ZICAM/ MATRIXX INITIATIVES [Suspect]
     Indication: OROPHARYNGEAL PAIN
     Dosage: 1 1 PO
     Route: 048
     Dates: start: 20110109, end: 20110115

REACTIONS (3)
  - AGEUSIA [None]
  - DEPRESSED MOOD [None]
  - ANXIETY [None]
